FAERS Safety Report 8665741 (Version 3)
Quarter: 2012Q4

REPORT INFORMATION
  Report Type: 
  Country: IT (occurrence: IT)
  Receive Date: 20120716
  Receipt Date: 20121016
  Transmission Date: 20130627
  Serious: Yes (Hospitalization)
  Sender: FDA-Public Use
  Company Number: PHHY2012IT059818

PATIENT
  Age: 27 Year
  Sex: Female

DRUGS (8)
  1. TOLEP [Suspect]
     Dosage: 2 tablets at 8:00 AM and 1 tablet at 13.00 PM and 1 tablet at 8.00 PM
     Route: 048
  2. TOLEP [Suspect]
     Dosage: 4500 mg, ONCE/SINGLE
     Route: 048
     Dates: start: 20120305
  3. SEROQUEL [Suspect]
     Dosage: 2 tablets at 8.00 PM
     Route: 048
  4. SEROQUEL [Suspect]
     Dosage: 12000 mg, ONCE/SINGLE
     Route: 048
     Dates: start: 20120305
  5. TAVOR (LORAZEPAM) [Concomitant]
     Dosage: 3.75 mg, UNK
  6. SEREPRILE [Concomitant]
     Dosage: 50 mg, UNK
  7. CIPRALEX [Concomitant]
     Dosage: 10 mg, UNK
  8. STILNOX [Concomitant]
     Dosage: 10 mg, UNK

REACTIONS (8)
  - Coma [Recovering/Resolving]
  - Respiratory failure [Recovering/Resolving]
  - Feeling hot [Recovering/Resolving]
  - Coordination abnormal [Recovering/Resolving]
  - Mydriasis [Recovering/Resolving]
  - Tachycardia [Recovering/Resolving]
  - Agitation [Recovering/Resolving]
  - Headache [Recovering/Resolving]
